FAERS Safety Report 9023363 (Version 1)
Quarter: 2013Q1

REPORT INFORMATION
  Report Type: Spontaneous
  Country: BR (occurrence: BR)
  Receive Date: 20130120
  Receipt Date: 20130120
  Transmission Date: 20140127
  Serious: Yes (Other)
  Sender: FDA-Public Use
  Company Number: BR-AMGEN-BRACT2012037349

PATIENT
  Age: 53 Year
  Sex: Female
  Weight: 70 kg

DRUGS (8)
  1. ENBREL [Suspect]
     Indication: RHEUMATOID ARTHRITIS
     Dosage: 50 MG, WEEKLY
     Route: 058
     Dates: start: 20110911, end: 201111
  2. ENBREL [Suspect]
     Dosage: 50 MG, QWK
     Route: 058
     Dates: start: 2011, end: 201208
  3. METHOTREXATE [Concomitant]
     Dosage: TWO TABLETS OF 2.5MG (5MG) 3 TIMES WEEKLY
     Route: 048
  4. METHOTREXATE [Concomitant]
     Dosage: 6 TABLETS (0.25MG EACH) THREE TIMES A WEEK
     Route: 048
  5. ENDOFOLIN [Concomitant]
     Dosage: 5 MG, ONCE WEEKLY
  6. PIROXICAM [Concomitant]
     Dosage: UNK
  7. DORFLEX [Concomitant]
     Indication: PAIN
     Dosage: UNK
  8. FLOTAC [Concomitant]
     Dosage: UNK

REACTIONS (7)
  - Drug ineffective [Unknown]
  - Blister [Not Recovered/Not Resolved]
  - Eye disorder [Unknown]
  - Needle issue [Unknown]
  - Needle issue [Unknown]
  - Syringe issue [Unknown]
  - Injection site pain [Unknown]
